FAERS Safety Report 9052714 (Version 2)
Quarter: 2013Q1

REPORT INFORMATION
  Report Type: Spontaneous
  Country: US (occurrence: US)
  Receive Date: 20130207
  Receipt Date: 20130313
  Transmission Date: 20140127
  Serious: Yes (Other)
  Sender: FDA-Public Use
  Company Number: US-ROCHE-1181594

PATIENT
  Sex: Female

DRUGS (5)
  1. PEGASYS [Suspect]
     Indication: HEPATITIS C
     Route: 065
  2. PEGASYS [Suspect]
     Route: 065
  3. PEGASYS [Suspect]
     Route: 065
     Dates: start: 20121116
  4. TELAPREVIR [Suspect]
     Indication: HEPATITIS C
     Route: 065
     Dates: start: 20121116
  5. RIBAPAK [Suspect]
     Indication: HEPATITIS C
     Dosage: DIVIDED DOSES
     Route: 048
     Dates: start: 20121116

REACTIONS (21)
  - Joint swelling [Unknown]
  - Localised infection [Unknown]
  - Hordeolum [Unknown]
  - Local swelling [Unknown]
  - Diarrhoea [Unknown]
  - Proctalgia [Unknown]
  - Nausea [Unknown]
  - Haemorrhoids [Unknown]
  - Weight decreased [Unknown]
  - Hair texture abnormal [Unknown]
  - Injection site pruritus [Unknown]
  - Injection site bruising [Unknown]
  - Pain in extremity [Unknown]
  - Local swelling [Unknown]
  - Joint swelling [Unknown]
  - Rectal haemorrhage [Unknown]
  - Lip dry [Unknown]
  - Chapped lips [Unknown]
  - Gastrointestinal tract irritation [Unknown]
  - Depression [Unknown]
  - Laryngitis [Unknown]
